FAERS Safety Report 12771220 (Version 1)
Quarter: 2016Q3

REPORT INFORMATION
  Report Type: Report from Study
  Country: AT (occurrence: AT)
  Receive Date: 20160922
  Receipt Date: 20160922
  Transmission Date: 20161109
  Serious: Yes (Other)
  Sender: FDA-Public Use
  Company Number: AT-TEVA-656672ACC

PATIENT
  Age: 72 Year
  Sex: Female

DRUGS (2)
  1. CAPECITABINE. [Suspect]
     Active Substance: CAPECITABINE
     Indication: BREAST CANCER METASTATIC
     Dosage: 2000 MG/M2 DAILY; ON DAYS 1 TO 14
     Route: 065
  2. BENDAMUSTINE HYDROCHLORIDE. [Suspect]
     Active Substance: BENDAMUSTINE HYDROCHLORIDE
     Indication: BREAST CANCER METASTATIC
     Dosage: ON DAY 1 AND 8 OF  3-WEEK CYCLE. STRENGTH: 25 AND 100 MG
     Route: 042

REACTIONS (2)
  - Off label use [Unknown]
  - Peripheral motor neuropathy [Recovered/Resolved]

NARRATIVE: CASE EVENT DATE: 20140406
